FAERS Safety Report 24388233 (Version 2)
Quarter: 2024Q4

REPORT INFORMATION
  Report Type: Report from Study
  Country: US (occurrence: US)
  Receive Date: 20241002
  Receipt Date: 20241021
  Transmission Date: 20250115
  Serious: Yes (Other)
  Sender: BAYER HEALTHCARE PHARMACEUTICALS INC.
  Company Number: US-BAYER-2024A134377

PATIENT
  Age: 79 Year
  Sex: Male
  Weight: 88.435 kg

DRUGS (37)
  1. ADEMPAS [Suspect]
     Active Substance: RIOCIGUAT
     Indication: Pulmonary arterial hypertension
     Dosage: UNK
     Dates: start: 20240703
  2. ADEMPAS [Suspect]
     Active Substance: RIOCIGUAT
     Indication: Pulmonary arterial hypertension
     Dosage: 1.5 MG, TID
     Route: 048
  3. TRULICITY [Concomitant]
     Active Substance: DULAGLUTIDE
  4. DULOXETINE HYDROCHLORIDE [Concomitant]
     Active Substance: DULOXETINE HYDROCHLORIDE
  5. METFORMIN HYDROCHLORIDE [Concomitant]
     Active Substance: METFORMIN HYDROCHLORIDE
  6. VITAMIN B6 [Concomitant]
     Active Substance: PYRIDOXINE HYDROCHLORIDE
  7. XIIDRA [Concomitant]
     Active Substance: LIFITEGRAST
  8. CRESTOR [Concomitant]
     Active Substance: ROSUVASTATIN CALCIUM
  9. Dulcolax [Concomitant]
  10. CALCIUM CARBONATE\CHOLECALCIFEROL [Concomitant]
     Active Substance: CALCIUM CARBONATE\CHOLECALCIFEROL
  11. LACTULOSE [Concomitant]
     Active Substance: LACTULOSE
  12. NARCAN [Concomitant]
     Active Substance: NALOXONE HYDROCHLORIDE
  13. MOTEGRITY [Concomitant]
     Active Substance: PRUCALOPRIDE SUCCINATE
  14. BISOPROLOL FUMARATE [Concomitant]
     Active Substance: BISOPROLOL FUMARATE
  15. JARDIANCE [Concomitant]
     Active Substance: EMPAGLIFLOZIN
  16. ESOMEPRAZOLE MAGNESIUM [Concomitant]
     Active Substance: ESOMEPRAZOLE MAGNESIUM
  17. LINZESS [Concomitant]
     Active Substance: LINACLOTIDE
  18. ENTRESTO [Concomitant]
     Active Substance: SACUBITRIL\VALSARTAN
  19. ALENDRONATE SODIUM [Concomitant]
     Active Substance: ALENDRONATE SODIUM
  20. ELIQUIS [Concomitant]
     Active Substance: APIXABAN
  21. CICLOPIROX [Concomitant]
     Active Substance: CICLOPIROX
  22. MAGNESIUM OXIDE [Concomitant]
     Active Substance: MAGNESIUM OXIDE
  23. TESTOSTERONE [Concomitant]
     Active Substance: TESTOSTERONE
  24. TRAMADOL HCL [Concomitant]
     Active Substance: TRAMADOL HYDROCHLORIDE
  25. DICLOFENAC SODIUM [Concomitant]
     Active Substance: DICLOFENAC SODIUM
  26. GLIPIZIDE [Concomitant]
     Active Substance: GLIPIZIDE
  27. CLONAZEPAM [Concomitant]
     Active Substance: CLONAZEPAM
  28. LIDOCAINE [Concomitant]
     Active Substance: LIDOCAINE
  29. VITAMIN C [Concomitant]
     Active Substance: ASCORBIC ACID
  30. BISACODYL [Concomitant]
     Active Substance: BISACODYL
  31. REPATHA [Concomitant]
     Active Substance: EVOLOCUMAB
  32. LEVOTHYROXINE SODIUM [Concomitant]
     Active Substance: LEVOTHYROXINE SODIUM
  33. VITAMIN B2 [Concomitant]
     Active Substance: RIBOFLAVIN
  34. MOVANTIK [Concomitant]
     Active Substance: NALOXEGOL OXALATE
  35. CLOTRIMAZOLE [Concomitant]
     Active Substance: CLOTRIMAZOLE
  36. ELIDEL [Concomitant]
     Active Substance: PIMECROLIMUS
  37. CLOPIDOGREL [Concomitant]
     Active Substance: CLOPIDOGREL BISULFATE

REACTIONS (8)
  - Cardiac disorder [None]
  - Insomnia [Recovering/Resolving]
  - Anxiety [None]
  - Cold sweat [None]
  - Labile blood pressure [None]
  - Orthostatic hypotension [None]
  - Blood pressure decreased [None]
  - Heart rate irregular [None]
